FAERS Safety Report 19512410 (Version 2)
Quarter: 2021Q3

REPORT INFORMATION
  Report Type: Spontaneous
  Country: US (occurrence: US)
  Receive Date: 20210709
  Receipt Date: 20210721
  Transmission Date: 20211014
  Serious: No
  Sender: FDA-Public Use
  Company Number: US-JNJFOC-20210709577

PATIENT
  Sex: Female

DRUGS (1)
  1. ROGAINE [Suspect]
     Active Substance: MINOXIDIL
     Indication: ALOPECIA
     Dosage: DOSE + FREQUENCY: CAPFUL AND ONCE A DAY
     Route: 061
     Dates: end: 2021

REACTIONS (4)
  - Trichorrhexis [Unknown]
  - Product residue present [Recovered/Resolved]
  - Alopecia [Unknown]
  - Overdose [Unknown]

NARRATIVE: CASE EVENT DATE: 2021
